FAERS Safety Report 4283878-4 (Version None)
Quarter: 2004Q1

REPORT INFORMATION
  Report Type: 
  Country: None (occurrence: None)
  Receive Date: 20040130
  Receipt Date: 20040123
  Transmission Date: 20041129
  Serious: Yes (Other)
  Sender: FDA-Public Use
  Company Number: US-SHR-04-019957

PATIENT
  Age: 22 Year
  Sex: Male

DRUGS (1)
  1. BETASERON [Suspect]
     Indication: MULTIPLE SCLEROSIS
     Dosage: 8 MIU, EVERY 2D, SUBCUTANEOUS
     Route: 058
     Dates: start: 20030628

REACTIONS (4)
  - ASTHENIA [None]
  - FEELING HOT [None]
  - INFLUENZA LIKE ILLNESS [None]
  - SUDDEN HEARING LOSS [None]
